FAERS Safety Report 8971481 (Version 3)
Quarter: 2013Q1

REPORT INFORMATION
  Report Type: Report from Study
  Country: DE (occurrence: DE)
  Receive Date: 20121218
  Receipt Date: 20130327
  Transmission Date: 20140127
  Serious: Yes (Hospitalization, Other)
  Sender: FDA-Public Use
  Company Number: PHHY2012DE116244

PATIENT
  Sex: Female

DRUGS (8)
  1. FTY 720 [Suspect]
     Indication: MULTIPLE SCLEROSIS
     Dosage: 0.5 MG, QD
     Route: 048
     Dates: start: 20120515, end: 20121214
  2. CITALOPRAM [Concomitant]
     Indication: DEPRESSION
     Dosage: 20 MG, QD
     Route: 048
  3. LYRICA [Concomitant]
     Indication: NECK PAIN
     Dosage: 75 MG, QD
     Route: 048
  4. METHIONINE [Concomitant]
     Indication: URINARY TRACT INFECTION
     Dosage: 500 MG, BID
     Route: 030
  5. KATADOLON [Concomitant]
     Indication: NECK PAIN
     Dosage: 100 MG, QD
     Route: 048
  6. CRANBERRY [Concomitant]
     Indication: URINARY TRACT INFECTION
     Dosage: 400 MG, QD
     Route: 048
  7. DETRUSITOL [Concomitant]
     Indication: DYSURIA
     Dosage: 4 MG, QD
     Route: 048
  8. DULCOLAX [Concomitant]
     Indication: GASTROINTESTINAL DISORDER
     Dosage: 5 MG, QOD
     Route: 048

REACTIONS (3)
  - Invasive ductal breast carcinoma [Unknown]
  - Osteoarthritis [Unknown]
  - Mitral valve incompetence [Unknown]
